FAERS Safety Report 6664259-2 (Version None)
Quarter: 2010Q2

REPORT INFORMATION
  Report Type: 
  Country: None (occurrence: None)
  Receive Date: 20100401
  Receipt Date: 20100323
  Transmission Date: 20101027
  Serious: Yes (Hospitalization)
  Sender: FDA-Public Use
  Company Number: PHHY2010US17787

PATIENT
  Sex: Male
  Weight: 86.168 kg

DRUGS (2)
  1. EXJADE [Suspect]
     Indication: BLOOD DISORDER
     Dosage: 500 MG, QD
     Dates: start: 20090510
  2. EXJADE [Suspect]
     Indication: LYMPHATIC DISORDER

REACTIONS (2)
  - KIDNEY INFECTION [None]
  - RENAL DISORDER [None]
